FAERS Safety Report 7757302-0 (Version None)
Quarter: 2011Q3

REPORT INFORMATION
  Report Type: 
  Country: None (occurrence: None)
  Receive Date: 20110916
  Receipt Date: 20110909
  Transmission Date: 20111222
  Serious: Yes (Death, Hospitalization)
  Sender: FDA-Public Use
  Company Number: US-VERTEX PHARMACEUTICALS INC.-AE-2011-001109

PATIENT
  Sex: Female

DRUGS (4)
  1. INCIVEK [Suspect]
     Indication: HEPATITIS C
     Route: 048
     Dates: start: 20110723, end: 20110824
  2. RIBAVIRIN [Concomitant]
     Indication: HEPATITIS C
     Route: 048
     Dates: start: 20110723, end: 20110824
  3. BENAZEPRIL HYDROCHLORIDE [Concomitant]
  4. PEGASYS [Concomitant]
     Indication: HEPATITIS C
     Route: 058
     Dates: start: 20110723, end: 20110824

REACTIONS (13)
  - MULTI-ORGAN FAILURE [None]
  - KLEBSIELLA BACTERAEMIA [None]
  - ANAEMIA [None]
  - METABOLIC ACIDOSIS [None]
  - HAEMORRHAGE [None]
  - THROMBOCYTOPENIA [None]
  - BLOOD LACTIC ACID INCREASED [None]
  - COLITIS ISCHAEMIC [None]
  - RENAL FAILURE ACUTE [None]
  - WOUND HAEMORRHAGE [None]
  - SEPTIC SHOCK [None]
  - ENCEPHALOPATHY [None]
  - COAGULOPATHY [None]
